FAERS Safety Report 7379895-8 (Version None)
Quarter: 2011Q1

REPORT INFORMATION
  Report Type: 
  Country: None (occurrence: None)
  Receive Date: 20110318
  Receipt Date: 20110308
  Transmission Date: 20110831
  Serious: Yes (Hospitalization)
  Sender: FDA-Public Use
  Company Number: 1000019276

PATIENT
  Age: 73 Year
  Sex: Male
  Weight: 67 kg

DRUGS (7)
  1. SERETIDE (SALMETEROL, FLUTICASONE) (SALMETEROL, FLUTICASONE) [Concomitant]
  2. LOSARTAN (LOSARTAN) (50 MILLIGRAM) (LOSARTAN) [Concomitant]
  3. TEOFILINA (THEOPHYLLINE) (THEOPHYLLINE) [Concomitant]
  4. ROFLUMILAST (ROFLUMILAST) (500 MICROGRAM, TABLETS) [Suspect]
     Indication: CHRONIC OBSTRUCTIVE PULMONARY DISEASE
     Dosage: 500 MCG (500 MCG,1 IN 1 D),ORAL
     Route: 048
     Dates: start: 20110215, end: 20110221
  5. ROFLUMILAST (ROFLUMILAST) (500 MICROGRAM, TABLETS) [Suspect]
     Indication: CHRONIC OBSTRUCTIVE PULMONARY DISEASE
     Dosage: 500 MCG (500 MCG,1 IN 1 D),ORAL
     Route: 048
     Dates: start: 20110201
  6. SPIRIVA (TIOTROPIUM BROMIDE) (18 MICROGRAM) (TIOTROPIUM BROMIDE) [Concomitant]
  7. ACETIL CISTEINA (ACETYLCYSTEINE) (ACETYLCYSTEINE) [Concomitant]

REACTIONS (1)
  - ATRIAL FIBRILLATION [None]
